FAERS Safety Report 6893601-2 (Version None)
Quarter: 2010Q3

REPORT INFORMATION
  Report Type: 
  Country: None (occurrence: None)
  Receive Date: 20100731
  Receipt Date: 20091022
  Transmission Date: 20110219
  Serious: No
  Sender: FDA-Public Use
  Company Number: US-PFIZER INC-2009268250

PATIENT
  Sex: Female
  Weight: 64.399 kg

DRUGS (4)
  1. LIPITOR [Suspect]
     Indication: BLOOD CHOLESTEROL INCREASED
     Dosage: 10 MG, 1X/DAY
     Route: 048
     Dates: start: 20080101
  2. OMEPRAZOLE [Concomitant]
     Indication: GASTROOESOPHAGEAL REFLUX DISEASE
     Dosage: UNK
  3. LORAZEPAM [Concomitant]
     Dosage: 0.25 MG, 1X/DAY
  4. LEXAPRO [Concomitant]
     Dosage: UNK
     Dates: start: 20060101

REACTIONS (1)
  - MUSCLE SPASMS [None]
